FAERS Safety Report 7449731-X (Version None)
Quarter: 2011Q2

REPORT INFORMATION
  Report Type: 
  Country: None (occurrence: None)
  Receive Date: 20110502
  Receipt Date: 20110418
  Transmission Date: 20111010
  Serious: Yes (Other)
  Sender: FDA-Public Use
  Company Number: CA-JNJFOC-20110409088

PATIENT
  Sex: Female
  Weight: 84 kg

DRUGS (11)
  1. REMICADE [Suspect]
     Indication: CROHN'S DISEASE
     Dosage: INFUSION #5
     Route: 042
  2. WARFARIN SODIUM [Concomitant]
     Route: 048
  3. ALTACE [Concomitant]
     Dosage: 5/25MG
     Route: 048
  4. ATIVAN [Concomitant]
     Route: 048
  5. PRILOSEC [Concomitant]
     Route: 048
  6. BENADRYL [Concomitant]
     Indication: PREMEDICATION
     Dosage: PRE-INFUSION
     Route: 048
  7. SLOW-K [Concomitant]
     Route: 048
  8. ACETAMINOPHEN [Concomitant]
     Indication: PREMEDICATION
     Route: 048
  9. PENTASA [Concomitant]
     Dosage: 2-4 TIMES DAILY, PRN
     Route: 048
  10. ENTEROCORT [Concomitant]
     Route: 048
  11. REMICADE [Suspect]
     Route: 042

REACTIONS (3)
  - INSOMNIA [None]
  - RESTLESS LEGS SYNDROME [None]
  - INFUSION RELATED REACTION [None]
